FAERS Safety Report 6222911-7 (Version None)
Quarter: 2009Q2

REPORT INFORMATION
  Report Type: 
  Country: None (occurrence: None)
  Receive Date: 20090609
  Receipt Date: 20090601
  Transmission Date: 20091009
  Serious: Yes (Death)
  Sender: FDA-Public Use
  Company Number: 20096594

PATIENT
  Age: 69 Year
  Sex: Female

DRUGS (1)
  1. BACLOFEN [Suspect]
     Indication: MUSCLE SPASTICITY
     Dosage: 55 MCG, DAILY, INTRATHECAL
     Route: 037
     Dates: start: 20070117

REACTIONS (2)
  - COMPLETED SUICIDE [None]
  - PAIN [None]
